FAERS Safety Report 6918901-9 (Version None)
Quarter: 2010Q3

REPORT INFORMATION
  Report Type: 
  Country: None (occurrence: None)
  Receive Date: 20100811
  Receipt Date: 20100809
  Transmission Date: 20110219
  Serious: Yes (Life-Threatening, Hospitalization)
  Sender: FDA-Public Use
  Company Number: BE-BRISTOL-MYERS SQUIBB COMPANY-15046659

PATIENT
  Age: 58 Year
  Sex: Male
  Weight: 58 kg

DRUGS (6)
  1. CETUXIMAB [Suspect]
     Indication: HEAD AND NECK CANCER
     Route: 042
     Dates: start: 20091207, end: 20100125
  2. CISPLATIN [Suspect]
     Indication: HEAD AND NECK CANCER
     Route: 042
     Dates: start: 20091207, end: 20100118
  3. TAXOTERE [Suspect]
     Indication: HEAD AND NECK CANCER
     Route: 042
     Dates: start: 20091207, end: 20100118
  4. FLUOROURACIL [Suspect]
     Indication: HEAD AND NECK CANCER
     Dosage: 1259.09 MG (6295.45 MG) DAYS 1 TO 5
     Route: 042
     Dates: start: 20091207, end: 20100118
  5. CALCIUM [Concomitant]
     Indication: HYPOCALCAEMIA
     Dosage: 1 DOSAGEFORM = 500 (UNITS NOT MENTIONED)
     Route: 042
     Dates: start: 20100205, end: 20100208
  6. LYSOMUCIL [Concomitant]
     Indication: RESPIRATORY FAILURE
     Dosage: 1 DF = 600 UNIT NOS
     Route: 042
     Dates: start: 20100208, end: 20100218

REACTIONS (2)
  - DEVICE RELATED SEPSIS [None]
  - HYPOVOLAEMIC SHOCK [None]
